FAERS Safety Report 6849820-4 (Version None)
Quarter: 2010Q3

REPORT INFORMATION
  Report Type: 
  Country: None (occurrence: None)
  Receive Date: 20100716
  Receipt Date: 20080421
  Transmission Date: 20110219
  Serious: No
  Sender: FDA-Public Use
  Company Number: US-PFIZER INC-2007084135

PATIENT
  Sex: Female

DRUGS (3)
  1. CHANTIX [Suspect]
     Indication: SMOKING CESSATION THERAPY
     Dates: start: 20071007
  2. MULTIVITAMINS, COMBINATIONS [Concomitant]
  3. LEVOTHYROXINE SODIUM [Concomitant]

REACTIONS (8)
  - BODY TEMPERATURE DECREASED [None]
  - DIZZINESS [None]
  - EAR DISORDER [None]
  - FATIGUE [None]
  - HEADACHE [None]
  - NAUSEA [None]
  - PAIN [None]
  - RASH PRURITIC [None]
